FAERS Safety Report 5814803-X (Version None)
Quarter: 2008Q3

REPORT INFORMATION
  Report Type: 
  Country: None (occurrence: None)
  Receive Date: 20080715
  Receipt Date: 20080708
  Transmission Date: 20090109
  Serious: Yes (Hospitalization)
  Sender: FDA-Public Use
  Company Number: 2008SP007340

PATIENT
  Age: 79 Year
  Sex: Male
  Weight: 78 kg

DRUGS (11)
  1. PEGINTRON (PEGINTERFERON ALFA-2B) (PEGINTERFERON ALFA-2B) [Suspect]
     Indication: METASTATIC MALIGNANT MELANOMA
     Dosage: 234 MCG; QD; SC, 2 MCG/KG; QD; SC
     Route: 058
     Dates: start: 20080409, end: 20080422
  2. PEGINTRON (PEGINTERFERON ALFA-2B) (PEGINTERFERON ALFA-2B) [Suspect]
     Indication: METASTATIC MALIGNANT MELANOMA
     Dosage: 234 MCG; QD; SC, 2 MCG/KG; QD; SC
     Route: 058
     Dates: start: 20080507
  3. SORAFENIB (SORAFENIB) [Suspect]
     Indication: METASTATIC MALIGNANT MELANOMA
     Dosage: 800 MG; QD; PO, 100 MG; QD; PO
     Route: 048
     Dates: start: 20080407, end: 20080423
  4. SORAFENIB (SORAFENIB) [Suspect]
     Indication: METASTATIC MALIGNANT MELANOMA
     Dosage: 800 MG; QD; PO, 100 MG; QD; PO
     Route: 048
     Dates: start: 20080505
  5. ACETAMINOPHEN [Suspect]
     Indication: CHILLS
     Dosage: 2000 MG; QD; PO
     Route: 048
     Dates: start: 20080416, end: 20080417
  6. ACETAMINOPHEN [Suspect]
     Indication: PAIN
     Dosage: 2000 MG; QD; PO
     Route: 048
     Dates: start: 20080416, end: 20080417
  7. ACETAMINOPHEN [Suspect]
     Indication: PYREXIA
     Dosage: 2000 MG; QD; PO
     Route: 048
     Dates: start: 20080416, end: 20080417
  8. DIPYRONE TAB [Suspect]
     Indication: BACK PAIN
     Dosage: 3000 MG; QD; PO
     Route: 048
     Dates: start: 20080411, end: 20080417
  9. GRANISETRON HCL [Suspect]
     Indication: NAUSEA
     Dosage: 9 MG; QD; IV
     Route: 042
     Dates: start: 20080418
  10. RAMIPRIL COMP 5/35 [Concomitant]
  11. TERABLOCK (TERAZOSIN) [Concomitant]

REACTIONS (7)
  - ANOREXIA [None]
  - DEHYDRATION [None]
  - GENERAL PHYSICAL HEALTH DETERIORATION [None]
  - LUMBAR VERTEBRAL FRACTURE [None]
  - NAUSEA [None]
  - SPINAL COMPRESSION FRACTURE [None]
  - THORACIC VERTEBRAL FRACTURE [None]
